FAERS Safety Report 13862910 (Version 1)
Quarter: 2017Q3

REPORT INFORMATION
  Report Type: Report from Study
  Country: IT (occurrence: IT)
  Receive Date: 20170814
  Receipt Date: 20170814
  Transmission Date: 20171127
  Serious: Yes (Death)
  Sender: FDA-Public Use
  Company Number: IT-SUN PHARMACEUTICAL INDUSTRIES LTD-2017R1-147455

PATIENT
  Age: 76 Year
  Sex: Male

DRUGS (4)
  1. IRINOTECAN [Suspect]
     Active Substance: IRINOTECAN
     Indication: COLORECTAL CANCER METASTATIC
     Dosage: 200 MG/M2 INTRAVENOUSLY (1 HOUR) ON DAY 1, EVERY 2 WEEKS
     Route: 042
  2. 5-FLUOROURACIL [Suspect]
     Active Substance: FLUOROURACIL
     Indication: COLORECTAL CANCER METASTATIC
     Dosage: 850 MG/M2 INTRAVENOUSLY (BOLUS) ON DAY 2, EVERY 2 WEEKS
     Route: 040
  3. CALCIUM FOLINAT [Suspect]
     Active Substance: LEUCOVORIN CALCIUM
     Indication: COLORECTAL CANCER METASTATIC
     Dosage: 250 MG/M2 INTRAVENOUSLY (2 HOURS), EVERY 2 WEEKS
     Route: 042
  4. BEVACIZUMAB. [Suspect]
     Active Substance: BEVACIZUMAB
     Indication: COLORECTAL CANCER METASTATIC
     Dosage: 5 MG/KG GIVEN INTRAVENOUSLY (1 HOUR), EVERY 2 WEEKS
     Route: 042

REACTIONS (1)
  - Cardiac failure [Fatal]
